FAERS Safety Report 6470750-4 (Version None)
Quarter: 2009Q4

REPORT INFORMATION
  Report Type: 
  Country: None (occurrence: None)
  Receive Date: 20091203
  Receipt Date: 20091123
  Transmission Date: 20100525
  Serious: Yes (Other)
  Sender: FDA-Public Use
  Company Number: B0589329A

PATIENT
  Age: 54 Year
  Sex: Male
  Weight: 43.5 kg

DRUGS (12)
  1. ACYCLOVIR [Suspect]
     Indication: HERPES ZOSTER
     Route: 048
     Dates: start: 20051015, end: 20061015
  2. NEORECORMON [Suspect]
     Route: 058
     Dates: start: 19900615
  3. NEORECORMON [Suspect]
     Route: 058
     Dates: start: 20040902
  4. NEORECORMON [Suspect]
     Route: 058
  5. NEORECORMON [Suspect]
     Route: 058
     Dates: end: 20070224
  6. XENICAL [Concomitant]
  7. ENALAPRIL [Concomitant]
     Dates: start: 20040902, end: 20070102
  8. CALCICHEW [Concomitant]
     Dates: start: 20040902
  9. ALFACALCIDOL [Concomitant]
     Dates: start: 20040902
  10. AMLODIPINE [Concomitant]
     Dates: start: 20040902, end: 20060314
  11. ATENOLOL [Concomitant]
     Dates: start: 20060314, end: 20070102
  12. GABAPENTIN [Concomitant]
     Dates: start: 20070102

REACTIONS (3)
  - APLASIA PURE RED CELL [None]
  - ARTHRALGIA [None]
  - HERPES ZOSTER [None]
